FAERS Safety Report 7973009-9 (Version None)
Quarter: 2011Q4

REPORT INFORMATION
  Report Type: 
  Country: None (occurrence: None)
  Receive Date: 20111213
  Receipt Date: 20111202
  Transmission Date: 20120403
  Serious: Yes (Other)
  Sender: FDA-Public Use
  Company Number: CN-BRISTOL-MYERS SQUIBB COMPANY-16268195

PATIENT
  Age: 51 Year
  Sex: Male

DRUGS (1)
  1. BARACLUDE [Suspect]
     Indication: CHRONIC HEPATITIS
     Route: 048

REACTIONS (3)
  - HYPOAESTHESIA [None]
  - URINARY TRACT INFECTION [None]
  - DIABETES MELLITUS [None]
